FAERS Safety Report 9231367 (Version 1)
Quarter: 2013Q2

REPORT INFORMATION
  Report Type: Spontaneous
  Country: CO (occurrence: CO)
  Receive Date: 20130415
  Receipt Date: 20130415
  Transmission Date: 20140414
  Serious: Yes (Death, Hospitalization)
  Sender: FDA-Public Use
  Company Number: CO-BAXTER-2013BAX013150

PATIENT
  Age: 63 Year
  Sex: Female

DRUGS (7)
  1. DIANEAL PD-2 CON DEXTROSA AL 1,5%. [Suspect]
     Indication: RENAL FAILURE CHRONIC
     Dosage: 1 BAG
     Route: 033
  2. DIANEAL PD-2 CON DEXTROSA AL 2,5%. [Suspect]
     Indication: RENAL FAILURE CHRONIC
     Dosage: 1 BAG
     Route: 033
  3. DIANEAL PD-2 CON DEXTROSA AL 4,25% [Suspect]
     Indication: RENAL FAILURE CHRONIC
     Route: 033
  4. CALCIUM [Concomitant]
     Indication: PRODUCT USED FOR UNKNOWN INDICATION
     Route: 048
  5. ERYTHROPOIETIN [Concomitant]
     Indication: ANAEMIA
     Route: 058
  6. METOPROLOL [Concomitant]
     Indication: HYPERTENSION
     Route: 048
  7. CALCITRIOL [Concomitant]
     Indication: PRODUCT USED FOR UNKNOWN INDICATION
     Route: 048

REACTIONS (3)
  - Calciphylaxis [Fatal]
  - Cardio-respiratory arrest [Fatal]
  - General physical health deterioration [Unknown]
